FAERS Safety Report 22228568 (Version 2)
Quarter: 2023Q2

REPORT INFORMATION
  Report Type: Spontaneous
  Country: CA (occurrence: CA)
  Receive Date: 20230419
  Receipt Date: 20230505
  Transmission Date: 20230722
  Serious: Yes (Life-Threatening, Hospitalization)
  Sender: FDA-Public Use
  Company Number: CA-PFIZER INC-202300159863

PATIENT
  Age: 41 Year
  Sex: Female

DRUGS (2)
  1. XELJANZ [Suspect]
     Active Substance: TOFACITINIB CITRATE
     Indication: Rheumatoid arthritis
     Dosage: 5 MG, 2X/DAY
     Route: 048
     Dates: start: 20230204
  2. CELEBREX [Concomitant]
     Active Substance: CELECOXIB
     Dosage: 1 DF
     Route: 065

REACTIONS (4)
  - Heart rate increased [Unknown]
  - Condition aggravated [Not Recovered/Not Resolved]
  - Chest pain [Recovered/Resolved]
  - Acne [Unknown]

NARRATIVE: CASE EVENT DATE: 20230201
